FAERS Safety Report 10398529 (Version 2)
Quarter: 2014Q3

REPORT INFORMATION
  Report Type: Report from Study
  Country: BR (occurrence: BR)
  Receive Date: 20140821
  Receipt Date: 20140930
  Transmission Date: 20150326
  Serious: Yes (Other)
  Sender: FDA-Public Use
  Company Number: PHHY2014BR101547

PATIENT
  Age: 53 Year

DRUGS (4)
  1. BUDESONIDE. [Concomitant]
     Active Substance: BUDESONIDE
     Dosage: 50 UG, NASAL
  2. ONBREZ [Suspect]
     Active Substance: INDACATEROL
     Dosage: 150 UG, IN A SINGLE MORNING DOSE
  3. LOSARTAN [Concomitant]
     Active Substance: LOSARTAN
     Dosage: 50 MG, UNK
  4. SIMVASTATIN. [Concomitant]
     Active Substance: SIMVASTATIN
     Dosage: 20 MG, UNK

REACTIONS (4)
  - Pulmonary function test decreased [Unknown]
  - Hyperglycaemia [Unknown]
  - Weight decreased [Unknown]
  - Depression [Unknown]
